FAERS Safety Report 10967044 (Version 1)
Quarter: 2015Q1

REPORT INFORMATION
  Report Type: Report from Study
  Country: JP (occurrence: JP)
  Receive Date: 20150330
  Receipt Date: 20150330
  Transmission Date: 20150721
  Serious: Yes (Hospitalization)
  Sender: FDA-Public Use
  Company Number: JP-EISAI MEDICAL RESEARCH-E7080-00769-CLI-JP

PATIENT
  Age: 64 Year
  Sex: Female
  Weight: 46 kg

DRUGS (28)
  1. LENVATINIB [Suspect]
     Active Substance: LENVATINIB
     Route: 048
     Dates: start: 20111026, end: 20111117
  2. LENVATINIB [Suspect]
     Active Substance: LENVATINIB
     Route: 048
     Dates: start: 20111124, end: 20111130
  3. LENVATINIB [Suspect]
     Active Substance: LENVATINIB
     Route: 048
     Dates: start: 20150128, end: 20150217
  4. JANUVIA [Concomitant]
     Active Substance: SITAGLIPTIN PHOSPHATE
  5. GLUFAST [Concomitant]
     Active Substance: MITIGLINIDE
  6. AZUNOL GARGLE LIQUID [Concomitant]
  7. LENVATINIB [Suspect]
     Active Substance: LENVATINIB
     Route: 048
     Dates: start: 20150108, end: 20150120
  8. AMLODIPINE [Concomitant]
     Active Substance: AMLODIPINE BESYLATE
  9. ALFAROL [Concomitant]
     Active Substance: ALFACALCIDOL
  10. MAGLAX [Concomitant]
     Active Substance: MAGNESIUM OXIDE
  11. GASRICK D [Concomitant]
     Active Substance: FAMOTIDINE
  12. CALONAL [Concomitant]
     Active Substance: ACETAMINOPHEN
  13. LENVATINIB [Suspect]
     Active Substance: LENVATINIB
     Dosage: MULTIPLE INTERRUPTIONS
     Route: 048
     Dates: start: 20141021, end: 20141216
  14. LIPITOR [Concomitant]
     Active Substance: ATORVASTATIN CALCIUM
  15. KENTAN [Concomitant]
  16. LENVATINIB [Suspect]
     Active Substance: LENVATINIB
     Route: 048
     Dates: start: 20111207, end: 20111216
  17. LENVATINIB [Suspect]
     Active Substance: LENVATINIB
     Dosage: MULTIPLE INTERRUPTIONS
     Route: 048
     Dates: start: 20140122, end: 20140930
  18. THYRADIN S [Concomitant]
     Active Substance: LEVOTHYROXINE SODIUM
  19. GATIFLO [Concomitant]
     Active Substance: GATIFLOXACIN
  20. DEXALTIN [Concomitant]
     Active Substance: DEXAMETHASONE
  21. VISUALIN [Concomitant]
  22. LENVATINIB [Suspect]
     Active Substance: LENVATINIB
     Route: 048
     Dates: start: 20150304, end: 20150317
  23. METGLUCO [Concomitant]
     Active Substance: METFORMIN HYDROCHLORIDE
  24. RENIVACE [Concomitant]
     Active Substance: ENALAPRIL
  25. MYSER [Concomitant]
     Active Substance: DIFLUPREDNATE
  26. LAXOBERON [Concomitant]
     Active Substance: SODIUM PICOSULFATE
  27. LENVATINIB [Suspect]
     Active Substance: LENVATINIB
     Indication: THYROID CANCER
     Route: 048
     Dates: start: 20111006, end: 20111017
  28. LENVATINIB [Suspect]
     Active Substance: LENVATINIB
     Dosage: MULTIPLE INTERRUPTIONS
     Route: 048
     Dates: start: 20120105, end: 20140107

REACTIONS (4)
  - Hypermagnesaemia [Recovered/Resolved]
  - Proteinuria [Recovered/Resolved]
  - Platelet count abnormal [Not Recovered/Not Resolved]
  - Blood creatinine increased [Recovering/Resolving]

NARRATIVE: CASE EVENT DATE: 20111117
